FAERS Safety Report 24005414 (Version 1)
Quarter: 2024Q2

REPORT INFORMATION
  Report Type: Spontaneous
  Country: US (occurrence: US)
  Receive Date: 20240624
  Receipt Date: 20240624
  Transmission Date: 20240716
  Serious: Yes (Hospitalization, Other)
  Sender: FDA-Public Use
  Company Number: US-GSKCCFUS-Case-02035826_AE-112889

PATIENT

DRUGS (2)
  1. VENTOLIN HFA [Suspect]
     Active Substance: ALBUTEROL SULFATE
     Indication: Hypersensitivity
     Dosage: UNK
     Route: 055
  2. VENTOLIN HFA [Suspect]
     Active Substance: ALBUTEROL SULFATE
     Indication: Sinus disorder

REACTIONS (11)
  - COVID-19 [Recovered/Resolved]
  - Pneumonia aspiration [Recovered/Resolved]
  - Drainage [Unknown]
  - Lower limb fracture [Unknown]
  - Fall [Unknown]
  - Upper limb fracture [Unknown]
  - Hand fracture [Unknown]
  - Rotator cuff syndrome [Unknown]
  - Feeling abnormal [Unknown]
  - Extra dose administered [Unknown]
  - Product use in unapproved indication [Unknown]

NARRATIVE: CASE EVENT DATE: 20231001
